FAERS Safety Report 7451991-6 (Version None)
Quarter: 2011Q2

REPORT INFORMATION
  Report Type: 
  Country: None (occurrence: None)
  Receive Date: 20110425
  Receipt Date: 20110411
  Transmission Date: 20111010
  Serious: Yes (Other)
  Sender: FDA-Public Use
  Company Number: 2011MA003948

PATIENT
  Sex: Male

DRUGS (2)
  1. MIRTAZAPINE [Suspect]
     Dosage: 15 MG
  2. MIRTAZAPINE [Suspect]
     Dosage: 15 MG

REACTIONS (1)
  - RESTLESS LEGS SYNDROME [None]
